FAERS Safety Report 13960731 (Version 1)
Quarter: 2017Q3

REPORT INFORMATION
  Report Type: Spontaneous
  Country: GB (occurrence: GB)
  Receive Date: 20170912
  Receipt Date: 20170912
  Transmission Date: 20171128
  Serious: Yes (Other)
  Sender: FDA-Public Use
  Company Number: GB-PFIZER INC-2017388325

PATIENT
  Age: 71 Year
  Sex: Male
  Weight: 78.6 kg

DRUGS (5)
  1. ATORVASTATIN CALCIUM. [Suspect]
     Active Substance: ATORVASTATIN CALCIUM
     Indication: CARDIOVASCULAR EVENT PROPHYLAXIS
     Dosage: AT NIGHT.
     Route: 048
     Dates: start: 20170806, end: 20170818
  2. LEVOTHYROXINE SODIUM. [Concomitant]
     Active Substance: LEVOTHYROXINE SODIUM
  3. ASPIRIN (E.C.) [Concomitant]
     Active Substance: ASPIRIN
  4. OMEPRAZOLE. [Concomitant]
     Active Substance: OMEPRAZOLE
  5. TICAGRELOR. [Concomitant]
     Active Substance: TICAGRELOR

REACTIONS (5)
  - Blood pressure increased [Recovered/Resolved]
  - Vertigo [Recovered/Resolved]
  - Throat irritation [Recovered/Resolved]
  - Cough [Recovered/Resolved]
  - Nausea [Recovered/Resolved]

NARRATIVE: CASE EVENT DATE: 20170807
